FAERS Safety Report 4985219-3 (Version None)
Quarter: 2006Q2

REPORT INFORMATION
  Report Type: 
  Country: None (occurrence: None)
  Receive Date: 20060427
  Receipt Date: 20051019
  Transmission Date: 20061013
  Serious: Yes (Hospitalization, Disabling)
  Sender: FDA-Public Use
  Company Number: US-MERCK-0510USA07903

PATIENT
  Age: 63 Year
  Sex: Female
  Weight: 109 kg

DRUGS (5)
  1. VIOXX [Suspect]
     Indication: CARPAL TUNNEL SYNDROME
     Route: 048
     Dates: start: 20030701, end: 20040101
  2. VIOXX [Suspect]
     Indication: PAIN
     Route: 048
     Dates: start: 20030701, end: 20040101
  3. GLUCOPHAGE [Concomitant]
     Indication: DIABETES MELLITUS
     Route: 065
  4. GLUCOTROL XL [Concomitant]
     Indication: DIABETES MELLITUS
     Route: 065
  5. ASPIRIN [Concomitant]
     Indication: ARTHRALGIA
     Route: 065
     Dates: start: 20020101, end: 20040501

REACTIONS (9)
  - AMNESIA [None]
  - CARDIAC MURMUR [None]
  - CEREBROVASCULAR ACCIDENT [None]
  - DIZZINESS [None]
  - DRUG HYPERSENSITIVITY [None]
  - POLYTRAUMATISM [None]
  - PRURITUS ALLERGIC [None]
  - SPEECH DISORDER [None]
  - SWELLING [None]
